FAERS Safety Report 8263851-1 (Version None)
Quarter: 2012Q2

REPORT INFORMATION
  Report Type: 
  Country: None (occurrence: None)
  Receive Date: 20120405
  Receipt Date: 20120402
  Transmission Date: 20120825
  Serious: Yes (Hospitalization)
  Sender: FDA-Public Use
  Company Number: FR-MERCK-1203FRA00025

PATIENT
  Age: 79 Year
  Sex: Female

DRUGS (7)
  1. AMLODIPINE BESYLATE AND PERINDOPRIL ARGININE [Suspect]
     Route: 048
     Dates: end: 20110920
  2. IODINE-131 [Suspect]
     Route: 042
     Dates: start: 20110921, end: 20110921
  3. ACETYLCYSTEINE [Concomitant]
     Route: 048
     Dates: start: 20110921, end: 20110921
  4. JANUVIA [Suspect]
     Indication: TYPE 2 DIABETES MELLITUS
     Route: 048
     Dates: end: 20110922
  5. SIMVASTATIN [Concomitant]
     Route: 065
  6. NEBIVOLOL HYDROCHLORIDE [Suspect]
     Route: 048
     Dates: end: 20110922
  7. GLYBURIDE AND METFORMIN HYDROCHLORIDE [Concomitant]
     Route: 048
     Dates: end: 20110920

REACTIONS (2)
  - RENAL TUBULAR DISORDER [None]
  - DRUG INTERACTION [None]
